FAERS Safety Report 7679438-5 (Version None)
Quarter: 2011Q3

REPORT INFORMATION
  Report Type: 
  Country: None (occurrence: None)
  Receive Date: 20110812
  Receipt Date: 20110801
  Transmission Date: 20111222
  Serious: Yes (Death)
  Sender: FDA-Public Use
  Company Number: JP-UCBSA-036511

PATIENT
  Sex: Female

DRUGS (4)
  1. TEGRETOL [Suspect]
     Indication: PARTIAL SEIZURES
     Route: 048
     Dates: start: 19830101, end: 20110601
  2. KEPPRA [Suspect]
     Indication: PARTIAL SEIZURES
     Route: 048
     Dates: start: 20110511, end: 20110610
  3. HYDANTOL F [Suspect]
     Indication: PARTIAL SEIZURES
     Route: 048
     Dates: start: 19830101, end: 20110511
  4. HYDANTOL F [Suspect]
     Dosage: DAILY DOSE : 8 DF
     Route: 048
     Dates: start: 20110601, end: 20110610

REACTIONS (2)
  - SICK SINUS SYNDROME [None]
  - SUDDEN DEATH [None]
